FAERS Safety Report 5772821-4 (Version None)
Quarter: 2008Q2

REPORT INFORMATION
  Report Type: 
  Country: None (occurrence: None)
  Receive Date: 20080611
  Receipt Date: 20080529
  Transmission Date: 20081010
  Serious: Yes (Hospitalization)
  Sender: FDA-Public Use
  Company Number: 233885J08USA

PATIENT
  Age: 37 Year
  Sex: Female
  Weight: 59.8748 kg

DRUGS (5)
  1. REBIF [Suspect]
     Indication: MULTIPLE SCLEROSIS
     Dosage: 44 MCG, 3 IN 1 WEEKS,  SUBCUTANEOUS
     Route: 058
     Dates: start: 20070501
  2. PROZAC [Concomitant]
  3. VITAMIN B12 (BITAMIN B12 NOS) [Concomitant]
  4. NEXIUM [Concomitant]
  5. BROMOCRIPTINE MESYLATE [Concomitant]

REACTIONS (6)
  - BLOOD POTASSIUM DECREASED [None]
  - HIATUS HERNIA [None]
  - INSOMNIA [None]
  - NAUSEA [None]
  - PARAESTHESIA [None]
  - VOMITING [None]
